FAERS Safety Report 4615275-3 (Version None)
Quarter: 2005Q1

REPORT INFORMATION
  Report Type: 
  Country: None (occurrence: None)
  Receive Date: 20050317
  Receipt Date: 20050308
  Transmission Date: 20050727
  Serious: Yes (Hospitalization)
  Sender: FDA-Public Use
  Company Number: 2005-03-0760

PATIENT
  Age: 52 Year
  Sex: Female

DRUGS (2)
  1. INTRON A [Suspect]
     Indication: POLYCYTHAEMIA VERA
     Dosage: 3-6 MU SUBCUTANEOUS
     Route: 058
     Dates: start: 20040810
  2. KLIOGEST [Concomitant]

REACTIONS (1)
  - HYPOGLYCAEMIA [None]
